FAERS Safety Report 21216014 (Version 1)
Quarter: 2022Q3

REPORT INFORMATION
  Report Type: Spontaneous
  Country: FR (occurrence: FR)
  Receive Date: 20220816
  Receipt Date: 20220816
  Transmission Date: 20221027
  Serious: Yes (Hospitalization)
  Sender: FDA-Public Use
  Company Number: None

PATIENT
  Age: 82 Year
  Sex: Male
  Weight: 68 kg

DRUGS (9)
  1. OMEPRAZOLE [Suspect]
     Active Substance: OMEPRAZOLE
     Indication: Gastrooesophageal reflux disease
     Dosage: 10 MG, THERAPY START DATE: ASKU, FREQUENCY TIME-1 DAY
  2. MIANSERIN HYDROCHLORIDE [Suspect]
     Active Substance: MIANSERIN HYDROCHLORIDE
     Indication: Mixed anxiety and depressive disorder
     Dosage: 30 MG, THERAPY START DATE: ASKU, FREQUENCY TIME-1 DAY
  3. COMIRNATY [Suspect]
     Active Substance: TOZINAMERAN
     Indication: COVID-19 immunisation
     Dosage: D1+D2+R1, FORM STRENGTH 30 MICROGRAMS/DOSE, MRNA (MODIFIED NUCLEOSIDE) VACCINE AGAINST COVID-19, 1 D
     Dates: start: 20210406, end: 20211201
  4. LACTULOSE [Suspect]
     Active Substance: LACTULOSE
     Indication: Gastrointestinal motility disorder
     Dosage: 2 DF, FREQUENCY TIME-1 DAY, THERAPY START DATE: ASKU
  5. ZINC GLUCONATE [Suspect]
     Active Substance: ZINC GLUCONATE
     Indication: Vitamin D deficiency
     Dosage: FORM STRENGTH: 15 MG, UNIT DOSE: 1 DF, FREQUENCY TIME-1 MONTH, THERAPY START DATE: ASKU
  6. ELIQUIS [Suspect]
     Active Substance: APIXABAN
     Indication: Atrial fibrillation
     Dosage: FORM STRENGTH: 5 MG, UNIT DOSE: 10 MG, FREQUENCY TIME-1 DAY, THERAPY START DATE: ASKU
     Dates: end: 20220522
  7. XANAX [Suspect]
     Active Substance: ALPRAZOLAM
     Indication: Mixed anxiety and depressive disorder
     Dosage: SCORED TABLET, FORM STRENGTH: 0.25 MG, UNIT DOSE:1 DF, FREQUENCY TIME-1 DAY, THERAPY START DATE: ASK
  8. CHOLECALCIFEROL [Suspect]
     Active Substance: CHOLECALCIFEROL
     Indication: Zinc deficiency
     Dosage: ORAL SOLUTION IN AMPOULE FORM STRENGTH: 50,000 IU, UNIT DOSE:1 DF, FREQUENCY TIME-1 DAY, THERAPY STA
     Dates: end: 20220522
  9. CICLOPIROX [Concomitant]
     Active Substance: CICLOPIROX
     Indication: Product used for unknown indication
     Dosage: 1 DF, FREQUENCY TIME-1 TOTAL, THERAPY START DATE: ASKU
     Dates: end: 20220522

REACTIONS (1)
  - Ischaemic stroke [Recovered/Resolved]

NARRATIVE: CASE EVENT DATE: 20220522
